FAERS Safety Report 11096379 (Version 1)
Quarter: 2015Q2

REPORT INFORMATION
  Report Type: Spontaneous
  Country: AU (occurrence: None)
  Receive Date: 20150506
  Receipt Date: 20150506
  Transmission Date: 20150821
  Serious: Yes (Life-Threatening, Hospitalization, Disabling)
  Sender: FDA-Public Use
  Company Number: None

PATIENT
  Age: 30 Year
  Sex: Male
  Weight: 115 kg

DRUGS (6)
  1. SOMAC [Concomitant]
     Active Substance: PANTOPRAZOLE SODIUM
  2. SYMBICORT RAPIHALER [Concomitant]
  3. QUETIAPINE [Suspect]
     Active Substance: QUETIAPINE
     Indication: SCHIZOPHRENIA
     Route: 060
     Dates: start: 20150429, end: 20150430
  4. BETAMINE [Concomitant]
  5. BEROCA ORIGINAL [Concomitant]
  6. QUETIAPINE [Suspect]
     Active Substance: QUETIAPINE
     Indication: SLEEP DISORDER
     Route: 060
     Dates: start: 20150429, end: 20150430

REACTIONS (6)
  - Tinnitus [None]
  - Vision blurred [None]
  - Speech disorder [None]
  - Gait disturbance [None]
  - Heart rate increased [None]
  - Loss of consciousness [None]

NARRATIVE: CASE EVENT DATE: 20150429
